FAERS Safety Report 19792968 (Version 1)
Quarter: 2021Q3

REPORT INFORMATION
  Report Type: Report from Study
  Country: AR (occurrence: AR)
  Receive Date: 20210906
  Receipt Date: 20210906
  Transmission Date: 20211014
  Serious: Yes (Hospitalization, Other)
  Sender: FDA-Public Use
  Company Number: AR-TAKEDA-2021TUS055159

PATIENT
  Age: 11 Year
  Sex: Male

DRUGS (3)
  1. HUMAN COAGULATION FACTOR VIII (RECOMBINANT) UNSPECIFIED [Suspect]
     Active Substance: ANTIHEMOPHILIC FACTOR, HUMAN RECOMBINANT
     Indication: HAEMOPHILIA
     Dosage: 1000 INTERNATIONAL UNIT, 3/WEEK
     Route: 050
     Dates: start: 20100901
  2. HUMAN COAGULATION FACTOR VIII (RECOMBINANT) UNSPECIFIED [Suspect]
     Active Substance: ANTIHEMOPHILIC FACTOR, HUMAN RECOMBINANT
     Indication: HAEMOPHILIA
     Dosage: 1000 INTERNATIONAL UNIT, 3/WEEK
     Route: 050
     Dates: start: 20100901
  3. HUMAN COAGULATION FACTOR VIII (RECOMBINANT) UNSPECIFIED [Suspect]
     Active Substance: ANTIHEMOPHILIC FACTOR, HUMAN RECOMBINANT
     Indication: HAEMOPHILIA
     Dosage: 1000 INTERNATIONAL UNIT, 3/WEEK
     Route: 050
     Dates: start: 20100901

REACTIONS (1)
  - Gingival bleeding [Recovered/Resolved]

NARRATIVE: CASE EVENT DATE: 20210830
